FAERS Safety Report 6156991-4 (Version None)
Quarter: 2009Q2

REPORT INFORMATION
  Report Type: 
  Country: None (occurrence: None)
  Receive Date: 20090413
  Receipt Date: 20090413
  Transmission Date: 20091009
  Serious: Yes (Other)
  Sender: FDA-Public Use
  Company Number: None

PATIENT
  Age: 23 Year
  Sex: Female
  Weight: 97.977 kg

DRUGS (1)
  1. DILTIAZEM [Suspect]
     Indication: HYPERTHYROIDISM
     Dosage: 90MG 2 TIME PER DAY PO
     Route: 048
     Dates: start: 20090325, end: 20090411

REACTIONS (6)
  - ANGINA PECTORIS [None]
  - CHEST DISCOMFORT [None]
  - DIZZINESS [None]
  - HEART RATE INCREASED [None]
  - RESPIRATORY DISORDER [None]
  - VOMITING [None]
